FAERS Safety Report 5636707-8 (Version None)
Quarter: 2008Q1

REPORT INFORMATION
  Report Type: 
  Country: None (occurrence: None)
  Receive Date: 20080225
  Receipt Date: 20080212
  Transmission Date: 20080703
  Serious: Yes (Hospitalization)
  Sender: FDA-Public Use
  Company Number: JP-ASTRAZENECA-2008SE00948

PATIENT
  Sex: Male

DRUGS (2)
  1. BLOPRESS [Suspect]
     Indication: CARDIAC FAILURE
     Route: 048
  2. ARTIST [Suspect]
     Route: 048

REACTIONS (1)
  - CARDIAC FAILURE [None]
